FAERS Safety Report 5188031-8 (Version None)
Quarter: 2006Q4

REPORT INFORMATION
  Report Type: 
  Country: None (occurrence: None)
  Receive Date: 20061214
  Receipt Date: 20061214
  Transmission Date: 20070319
  Serious: Yes (Hospitalization, Other)
  Sender: FDA-Public Use
  Company Number: None

PATIENT
  Age: 45 Year
  Sex: Male
  Weight: 90.7194 kg

DRUGS (1)
  1. ZOLOFT [Suspect]
     Indication: PREMATURE EJACULATION
     Dosage: 1/2 TABLET ONCE DAILY PO
     Route: 048
     Dates: start: 20010801, end: 20010805

REACTIONS (6)
  - ESSENTIAL TREMOR [None]
  - INSOMNIA [None]
  - PARKINSONISM [None]
  - POST PROCEDURAL COMPLICATION [None]
  - RESTLESS LEGS SYNDROME [None]
  - SLEEP APNOEA SYNDROME [None]
